FAERS Safety Report 11420869 (Version 1)
Quarter: 2015Q3

REPORT INFORMATION
  Report Type: Spontaneous
  Country: CN (occurrence: CN)
  Receive Date: 20150826
  Receipt Date: 20150826
  Transmission Date: 20151125
  Serious: Yes (Hospitalization)
  Sender: FDA-Public Use
  Company Number: CN-UNITED THERAPEUTICS-UNT-2015-010271

PATIENT
  Age: 20 Year
  Sex: Male
  Weight: 50 kg

DRUGS (1)
  1. REMODULIN [Suspect]
     Active Substance: TREPROSTINIL
     Indication: PULMONARY ARTERIAL HYPERTENSION
     Dosage: 0.01 ?G/KG, CONTINUING
     Route: 058
     Dates: start: 20150716, end: 20150808

REACTIONS (8)
  - Hydrothorax [Unknown]
  - Infusion site oedema [Unknown]
  - Drug dose omission [Unknown]
  - Localised oedema [Unknown]
  - Dyspnoea [Unknown]
  - Infusion site erythema [Unknown]
  - Asthenia [Unknown]
  - Device dislocation [Unknown]

NARRATIVE: CASE EVENT DATE: 20150803
